FAERS Safety Report 13805912 (Version 3)
Quarter: 2017Q3

REPORT INFORMATION
  Report Type: Spontaneous
  Country: GB (occurrence: GB)
  Receive Date: 20170728
  Receipt Date: 20170831
  Transmission Date: 20171127
  Serious: Yes (Disabling, Other)
  Sender: FDA-Public Use
  Company Number: GB-009507513-1707GBR009006

PATIENT
  Sex: Female

DRUGS (1)
  1. NEXPLANON [Suspect]
     Active Substance: ETONOGESTREL
     Dosage: 1 IMPLANT
     Route: 059
     Dates: start: 20170615

REACTIONS (4)
  - Increased appetite [Unknown]
  - Migraine [Unknown]
  - Disability [Unknown]
  - Headache [Unknown]

NARRATIVE: CASE EVENT DATE: 2017
